FAERS Safety Report 7643832-9 (Version None)
Quarter: 2011Q3

REPORT INFORMATION
  Report Type: 
  Country: None (occurrence: None)
  Receive Date: 20110729
  Receipt Date: 20100604
  Transmission Date: 20111222
  Serious: No
  Sender: FDA-Public Use
  Company Number: US-GLAXOSMITHKLINE-A0863061A

PATIENT
  Sex: Female

DRUGS (18)
  1. TYLENOL-500 [Concomitant]
  2. ADVIL LIQUI-GELS [Concomitant]
  3. SUDAFED 12 HOUR [Concomitant]
  4. TESTOSTERONE [Concomitant]
  5. UNKNOWN MEDICATION [Concomitant]
  6. AMITIZA [Concomitant]
  7. UNKNOWN MEDICATION [Concomitant]
  8. IMITREX [Suspect]
     Indication: MIGRAINE
     Dosage: 100MG AS REQUIRED
     Route: 048
     Dates: start: 19950101
  9. SYNTHROID [Concomitant]
  10. UNKNOWN MEDICATION [Concomitant]
  11. PREGNENOLONE [Concomitant]
  12. BUSPAR [Concomitant]
  13. NEXIUM [Concomitant]
  14. NIACIN [Concomitant]
  15. CLARITIN [Concomitant]
  16. VITAMIN C + E [Concomitant]
  17. PRASTERONE [Concomitant]
  18. ESTROGEN REPLACEMENT [Concomitant]

REACTIONS (4)
  - VOMITING [None]
  - SOMNOLENCE [None]
  - DRUG INEFFECTIVE [None]
  - NAUSEA [None]
